FAERS Safety Report 7690272 (Version 18)
Quarter: 2012Q4

REPORT INFORMATION
  Report Type: 
  Country: CA (occurrence: CA)
  Receive Date: 20101202
  Receipt Date: 20121213
  Transmission Date: 20130627
  Serious: Yes (Other)
  Sender: FDA-Public Use
  Company Number: CA-ROCHE-GNE310312

PATIENT
  Sex: Female
  Weight: 102.11 kg

DRUGS (10)
  1. XOLAIR [Suspect]
     Indication: ASTHMA
     Route: 058
     Dates: start: 20120606
  2. XOLAIR [Suspect]
     Route: 058
     Dates: start: 20090925
  3. XOLAIR [Suspect]
     Route: 058
     Dates: start: 20091009
  4. XOLAIR [Suspect]
     Route: 058
     Dates: start: 20091106
  5. XOLAIR [Suspect]
     Route: 058
     Dates: start: 20090812
  6. XOLAIR [Suspect]
     Route: 065
     Dates: start: 20120606
  7. PREDNISONE [Concomitant]
     Indication: PRODUCT USED FOR UNKNOWN INDICATION
     Dosage: tapering to 5 mg weekly
     Route: 065
  8. ADVAIR [Concomitant]
     Indication: PRODUCT USED FOR UNKNOWN INDICATION
  9. SINGULAIR [Concomitant]
     Indication: PRODUCT USED FOR UNKNOWN INDICATION
  10. FLOVENT [Concomitant]

REACTIONS (24)
  - Lung infection [Unknown]
  - Respiratory distress [Unknown]
  - Seasonal allergy [Unknown]
  - Dyspnoea [Unknown]
  - Nasopharyngitis [Unknown]
  - Stress [Unknown]
  - Malaise [Unknown]
  - Asthma [Unknown]
  - Infection [Unknown]
  - Insomnia [Unknown]
  - Swelling face [Recovered/Resolved]
  - Eye swelling [Recovered/Resolved]
  - Urticaria [Recovered/Resolved]
  - Rash [Not Recovered/Not Resolved]
  - Rash [Not Recovered/Not Resolved]
  - Diabetes mellitus [Unknown]
  - Blood cholesterol increased [Unknown]
  - Anaemia [Unknown]
  - Hyperthyroidism [Unknown]
  - Fatigue [Unknown]
  - Haematuria [Unknown]
  - Lower respiratory tract infection [Unknown]
  - Respiratory disorder [Recovering/Resolving]
  - Respiratory tract congestion [Unknown]
